FAERS Safety Report 8499147-2 (Version None)
Quarter: 2012Q2

REPORT INFORMATION
  Report Type: 
  Country: None (occurrence: None)
  Receive Date: 20120405
  Receipt Date: 20100514
  Transmission Date: 20120825
  Serious: Yes (Other)
  Sender: FDA-Public Use
  Company Number: PHHY2010US31799

PATIENT
  Age: 63 Year
  Sex: Female
  Weight: 72.6 kg

DRUGS (7)
  1. PREVACID [Concomitant]
  2. RECLAST [Suspect]
     Indication: OSTEOPOROSIS
     Dosage: 5 MG, YEARLY, INFUSION
     Dates: start: 20100222
  3. METFFORMIN HYDROCHLORIDE [Concomitant]
  4. CRESTOR [Concomitant]
  5. CELEXA [Concomitant]
  6. LOTREL [Concomitant]
  7. ATENOLOL [Concomitant]

REACTIONS (7)
  - VOMITING [None]
  - INFLUENZA LIKE ILLNESS [None]
  - PYREXIA [None]
  - NAUSEA [None]
  - MYALGIA [None]
  - ARTHRALGIA [None]
  - BLOOD MAGNESIUM DECREASED [None]
